FAERS Safety Report 17945219 (Version 15)
Quarter: 2021Q1

REPORT INFORMATION
  Report Type: Report from Study
  Country: None (occurrence: NL)
  Receive Date: 20200626
  Receipt Date: 20210330
  Transmission Date: 20210419
  Serious: Yes (Other)
  Sender: FDA-Public Use
  Company Number: NL-ABBVIE-19K-114-2988642-00

PATIENT
  Age: 72 Year
  Sex: Male

DRUGS (13)
  1. DUODOPA [Suspect]
     Active Substance: CARBIDOPA\LEVODOPA
     Indication: PARKINSON^S DISEASE
     Dosage: MD: 18.7, CD: 5.9, ED: 4.0; 16 HOUR ADMINISTRATION;
     Route: 050
     Dates: start: 20191028, end: 20191114
  2. BISACODYL. [Concomitant]
     Active Substance: BISACODYL
     Indication: ABNORMAL FAECES
     Dosage: IF NEEDED
  3. DUODOPA [Suspect]
     Active Substance: CARBIDOPA\LEVODOPA
     Dosage: MD: 18.7ML, CD: 5.3ML/H, ED: 4.0ML(REMAINED AT 16 HOURS)
     Route: 050
     Dates: start: 20200511, end: 2020
  4. DOMPERIDON [Concomitant]
     Active Substance: DOMPERIDONE
     Indication: IMPAIRED GASTRIC EMPTYING
     Dosage: CF
  5. DUODOPA [Suspect]
     Active Substance: CARBIDOPA\LEVODOPA
     Dosage: MD: 18.7ML, CD: 6.2ML/H, ED: 4.0ML; REMAINED AT 16 HOURS
     Route: 050
     Dates: start: 2020, end: 2020
  6. BISACODYL. [Concomitant]
     Active Substance: BISACODYL
     Indication: PRODUCT USED FOR UNKNOWN INDICATION
  7. DUODOPA [Suspect]
     Active Substance: CARBIDOPA\LEVODOPA
     Dosage: MD: 17.7 ML; CD: 5.5 ML/H; ED: 4.0 ML
     Route: 050
     Dates: start: 20200924
  8. DUODOPA [Suspect]
     Active Substance: CARBIDOPA\LEVODOPA
     Dosage: CD:4.9 ML
     Route: 050
  9. ROTIGOTINE [Concomitant]
     Active Substance: ROTIGOTINE
     Indication: PARKINSON^S DISEASE
     Dosage: FORM STRENGTH: 2 MG/24 HOUR, UNIT DOSE: 1 PATCH
  10. MACROGOL [Concomitant]
     Active Substance: POLYETHYLENE GLYCOLS
     Indication: ABNORMAL FAECES
  11. DUODOPA [Suspect]
     Active Substance: CARBIDOPA\LEVODOPA
     Dosage: MD: 18.7ML, CD: 5.7ML/H, ED: 4.0ML; REMAINED AT 16 HOURS
     Route: 050
     Dates: start: 20200924, end: 2020
  12. DUODOPA [Suspect]
     Active Substance: CARBIDOPA\LEVODOPA
     Dosage: MD: 18.7, CD: 5.9, ED: 4.0; 16 HOUR ADMINISTRATION
     Route: 050
     Dates: start: 20200629, end: 2020
  13. LAXANS [Concomitant]
     Indication: PRODUCT USED FOR UNKNOWN INDICATION

REACTIONS (59)
  - Impaired gastric emptying [Recovered/Resolved]
  - General physical health deterioration [Recovered/Resolved]
  - Decubitus ulcer [Not Recovered/Not Resolved]
  - Fear [Not Recovered/Not Resolved]
  - Freezing phenomenon [Not Recovered/Not Resolved]
  - Stoma site pain [Not Recovered/Not Resolved]
  - Unevaluable event [Recovering/Resolving]
  - Urinary tract infection [Recovered/Resolved]
  - Fluid intake reduced [Not Recovered/Not Resolved]
  - Speech disorder [Recovering/Resolving]
  - Wheelchair user [Recovering/Resolving]
  - Fall [Not Recovered/Not Resolved]
  - Bradykinesia [Not Recovered/Not Resolved]
  - Constipation [Recovered/Resolved]
  - Hallucination [Recovered/Resolved]
  - Balance disorder [Not Recovered/Not Resolved]
  - Bradyphrenia [Unknown]
  - Limb injury [Not Recovered/Not Resolved]
  - Device expulsion [Not Recovered/Not Resolved]
  - Restlessness [Not Recovered/Not Resolved]
  - Delusion [Not Recovered/Not Resolved]
  - Dyskinesia [Recovering/Resolving]
  - Muscle rigidity [Not Recovered/Not Resolved]
  - Stoma site discharge [Recovered/Resolved]
  - Vomiting [Not Recovered/Not Resolved]
  - Confusional state [Not Recovered/Not Resolved]
  - Feeling abnormal [Not Recovered/Not Resolved]
  - Disturbance in attention [Not Recovered/Not Resolved]
  - Tremor [Not Recovered/Not Resolved]
  - Dystonia [Not Recovered/Not Resolved]
  - Dermatitis [Not Recovered/Not Resolved]
  - Therapeutic product effect incomplete [Recovering/Resolving]
  - Syncope [Not Recovered/Not Resolved]
  - Stoma site erythema [Unknown]
  - Tongue movement disturbance [Recovered/Resolved]
  - Screaming [Not Recovered/Not Resolved]
  - Gait disturbance [Not Recovered/Not Resolved]
  - Muscle spasms [Not Recovered/Not Resolved]
  - Urosepsis [Not Recovered/Not Resolved]
  - Skin striae [Recovering/Resolving]
  - Device kink [Recovered/Resolved]
  - Delirium [Recovered/Resolved]
  - On and off phenomenon [Not Recovered/Not Resolved]
  - Nausea [Recovered/Resolved]
  - Dyskinesia [Recovered/Resolved]
  - Bowel movement irregularity [Recovered/Resolved]
  - Seizure [Unknown]
  - Reduced facial expression [Recovering/Resolving]
  - Speech disorder [Recovered/Resolved]
  - Abnormal faeces [Recovered/Resolved]
  - Condition aggravated [Recovering/Resolving]
  - Abnormal dreams [Not Recovered/Not Resolved]
  - Mobility decreased [Recovering/Resolving]
  - Dyskinesia [Recovering/Resolving]
  - Dyskinesia [Recovered/Resolved]
  - Mobility decreased [Recovering/Resolving]
  - Feeding disorder [Recovering/Resolving]
  - Blood pressure abnormal [Unknown]
  - Musculoskeletal stiffness [Recovering/Resolving]

NARRATIVE: CASE EVENT DATE: 201910
